FAERS Safety Report 4688858-2 (Version None)
Quarter: 2005Q2

REPORT INFORMATION
  Report Type: 
  Country: None (occurrence: None)
  Receive Date: 20050613
  Receipt Date: 20050608
  Transmission Date: 20051028
  Serious: Yes (Death, Life-Threatening, Hospitalization)
  Sender: FDA-Public Use
  Company Number: DE-GLAXOSMITHKLINE-D0046770A

PATIENT
  Age: 68 Year
  Sex: Male
  Weight: 85 kg

DRUGS (4)
  1. VIANI [Suspect]
     Dosage: 300UG SINGLE DOSE
     Route: 055
     Dates: start: 20050530, end: 20050530
  2. BEROTEC [Concomitant]
     Indication: ASTHMA
     Route: 055
  3. OMNIC [Concomitant]
     Indication: BENIGN PROSTATIC HYPERPLASIA
     Dosage: .4MG PER DAY
     Route: 048
     Dates: start: 20030101
  4. DICLO [Concomitant]
     Indication: PAIN
     Route: 048
     Dates: start: 20000101

REACTIONS (3)
  - BRONCHOSPASM [None]
  - DRUG HYPERSENSITIVITY [None]
  - DYSPNOEA [None]
